FAERS Safety Report 24569549 (Version 1)
Quarter: 2024Q4

REPORT INFORMATION
  Report Type: Spontaneous
  Country: US (occurrence: None)
  Receive Date: 20241031
  Receipt Date: 20241031
  Transmission Date: 20250115
  Serious: Yes (Hospitalization)
  Sender: Public
  Company Number: None

PATIENT
  Age: 73 Year
  Sex: Male

DRUGS (11)
  1. LENALIDOMIDE [Suspect]
     Active Substance: LENALIDOMIDE
     Indication: Plasma cell myeloma
     Dosage: OTHER FREQUENCY : DAILY EVERY 28-DAY CYCLE;?
     Route: 048
     Dates: start: 20230524
  2. CALCIUM POW CITRATE [Concomitant]
  3. CIALIS [Concomitant]
     Active Substance: TADALAFIL
  4. COLACE [Concomitant]
     Active Substance: DOCUSATE SODIUM
  5. DILAUDID [Concomitant]
     Active Substance: HYDROMORPHONE HYDROCHLORIDE
  6. FERROUS SULFATE [Concomitant]
     Active Substance: FERROUS SULFATE
  7. IPRATROPIUM SOL ALBUTER [Concomitant]
  8. LASIX [Concomitant]
     Active Substance: FUROSEMIDE
  9. LINZESS [Concomitant]
     Active Substance: LINACLOTIDE
  10. LIPITOR [Concomitant]
     Active Substance: ATORVASTATIN CALCIUM
  11. LUNESTA [Concomitant]
     Active Substance: ESZOPICLONE

REACTIONS (3)
  - Cellulitis [None]
  - Oedema peripheral [None]
  - Pain in extremity [None]

NARRATIVE: CASE EVENT DATE: 20240701
